FAERS Safety Report 10393749 (Version 1)
Quarter: 2014Q3

REPORT INFORMATION
  Report Type: Report from Study
  Country: PE (occurrence: PE)
  Receive Date: 20140819
  Receipt Date: 20140819
  Transmission Date: 20150326
  Serious: Yes (Death)
  Sender: FDA-Public Use
  Company Number: PE-ASTRAZENECA-2014SE61163

PATIENT
  Age: 34100 Day
  Sex: Female

DRUGS (2)
  1. PLENDIL [Suspect]
     Active Substance: FELODIPINE
     Route: 048
     Dates: start: 20130709
  2. ATACAND PLUS [Concomitant]
     Active Substance: CANDESARTAN CILEXETIL\HYDROCHLOROTHIAZIDE
     Indication: HYPERTENSION
     Route: 048
     Dates: start: 20130709

REACTIONS (1)
  - Death [Fatal]

NARRATIVE: CASE EVENT DATE: 20140616
